FAERS Safety Report 11057604 (Version 2)
Quarter: 2015Q2

REPORT INFORMATION
  Report Type: Report from Study
  Country: BR (occurrence: BR)
  Receive Date: 20150422
  Receipt Date: 20150505
  Transmission Date: 20150821
  Serious: Yes (Hospitalization)
  Sender: FDA-Public Use
  Company Number: PHHY2015BR044936

PATIENT
  Sex: Female

DRUGS (1)
  1. DIOVAN [Suspect]
     Active Substance: VALSARTAN
     Indication: BLOOD PRESSURE MANAGEMENT
     Route: 065

REACTIONS (2)
  - Diabetes mellitus [Unknown]
  - Weight decreased [Unknown]
